FAERS Safety Report 17968582 (Version 1)
Quarter: 2020Q3

REPORT INFORMATION
  Report Type: Spontaneous
  Country: US (occurrence: US)
  Receive Date: 20200701
  Receipt Date: 20200701
  Transmission Date: 20201103
  Serious: Yes (Other)
  Sender: FDA-Public Use
  Company Number: None

PATIENT
  Age: 68 Year
  Sex: Female
  Weight: 60.75 kg

DRUGS (7)
  1. MULTIVITAMIN [Concomitant]
     Active Substance: VITAMINS
  2. VITAMIN C [Concomitant]
     Active Substance: ASCORBIC ACID
  3. INHALER FOR ASTHMA [Concomitant]
     Active Substance: UNSPECIFIED INGREDIENT
  4. MONTELUKAST [Suspect]
     Active Substance: MONTELUKAST SODIUM
     Indication: ASTHMA
     Route: 048
     Dates: start: 20190801, end: 20200101
  5. VITAMIN K2 [Concomitant]
     Active Substance: MENAQUINONE 6
  6. UBIQUINOL [Concomitant]
     Active Substance: UBIQUINOL
  7. RED YEAST RICE [Concomitant]
     Active Substance: DIETARY SUPPLEMENT

REACTIONS (7)
  - Abdominal pain upper [None]
  - Dyspnoea [None]
  - Abdominal discomfort [None]
  - Abnormal dreams [None]
  - Back pain [None]
  - Poor quality sleep [None]
  - Insomnia [None]

NARRATIVE: CASE EVENT DATE: 20190801
